FAERS Safety Report 4303853-0 (Version None)
Quarter: 2004Q1

REPORT INFORMATION
  Report Type: 
  Country: None (occurrence: None)
  Receive Date: 20040225
  Receipt Date: 20040129
  Transmission Date: 20041129
  Serious: Yes (Hospitalization)
  Sender: FDA-Public Use
  Company Number: US-GLAXOSMITHKLINE-A0495817A

PATIENT
  Age: 55 Year
  Sex: Female

DRUGS (5)
  1. AVANDIA [Suspect]
     Indication: DIABETES MELLITUS
     Route: 048
     Dates: start: 20030101
  2. CLARINEX [Concomitant]
  3. LEVOXYL [Concomitant]
  4. OGEN [Concomitant]
  5. PROMETRIUM [Concomitant]

REACTIONS (7)
  - CALCIPHYLAXIS [None]
  - FAT NECROSIS OF BREAST [None]
  - FIBROSIS [None]
  - INFLAMMATION [None]
  - PANNICULITIS [None]
  - SOFT TISSUE DISORDER [None]
  - SUBCUTANEOUS NODULE [None]
